FAERS Safety Report 11043973 (Version 1)
Quarter: 2015Q2

REPORT INFORMATION
  Report Type: Spontaneous
  Country: US (occurrence: None)
  Receive Date: 20150416
  Receipt Date: 20150416
  Transmission Date: 20150821
  Serious: Yes (Other)
  Sender: FDA-Public Use
  Company Number: None

PATIENT
  Age: 20 Year
  Sex: Female
  Weight: 51 kg

DRUGS (1)
  1. DEPO-PROVERA [Suspect]
     Active Substance: MEDROXYPROGESTERONE ACETATE
     Indication: CONTRACEPTION
     Dosage: ONE DOSE RIGHT DELTOID
     Route: 030
     Dates: start: 20140620

REACTIONS (3)
  - Pregnancy with injectable contraceptive [None]
  - Pregnancy with contraceptive device [None]
  - Exposure via father [None]

NARRATIVE: CASE EVENT DATE: 20140620
